FAERS Safety Report 8955137 (Version 6)
Quarter: 2013Q2

REPORT INFORMATION
  Report Type: Report from Study
  Country: NL (occurrence: NL)
  Receive Date: 20121207
  Receipt Date: 20130424
  Transmission Date: 20140414
  Serious: Yes (Hospitalization)
  Sender: FDA-Public Use
  Company Number: NL-AMGEN-NLDNI2012078460

PATIENT
  Sex: 0

DRUGS (1)
  1. PANITUMUMAB [Suspect]
     Indication: COLORECTAL CANCER
     Dosage: 400 MG, UNK
     Dates: start: 20100827, end: 20100924

REACTIONS (3)
  - Coagulopathy [Recovered/Resolved]
  - Hepatic failure [Not Recovered/Not Resolved]
  - Diarrhoea [Unknown]
